FAERS Safety Report 5350983-0 (Version None)
Quarter: 2007Q2

REPORT INFORMATION
  Report Type: 
  Country: None (occurrence: None)
  Receive Date: 20070608
  Receipt Date: 20070529
  Transmission Date: 20071010
  Serious: Yes (Disabling, Other)
  Sender: FDA-Public Use
  Company Number: GB-ASTRAZENECA-2007GB01126

PATIENT
  Age: 81 Year
  Sex: Male
  Weight: 75 kg

DRUGS (4)
  1. ROSUVASTATIN [Suspect]
     Indication: ANGINA PECTORIS
     Route: 048
     Dates: start: 20040226, end: 20070310
  2. FUROSEMIDE [Concomitant]
     Dates: start: 20060116
  3. OMEPRAZOLE [Concomitant]
     Dates: start: 20070327, end: 20070423
  4. RAMIPRIL [Concomitant]
     Dates: start: 20060613

REACTIONS (3)
  - ASTHENIA [None]
  - PAIN [None]
  - TREMOR [None]
